FAERS Safety Report 23088924 (Version 1)
Quarter: 2023Q4

REPORT INFORMATION
  Report Type: Spontaneous
  Country: US (occurrence: None)
  Receive Date: 20231018
  Receipt Date: 20231018
  Transmission Date: 20240110
  Serious: Yes (Hospitalization)
  Sender: FDA-Public Use
  Company Number: None

PATIENT
  Age: 78 Year
  Sex: Female
  Weight: 95.3 kg

DRUGS (8)
  1. FEMARA [Suspect]
     Active Substance: LETROZOLE
     Dates: end: 20230927
  2. PALBOCICLIB [Suspect]
     Active Substance: PALBOCICLIB
     Dates: end: 20230920
  3. Amiodarione [Concomitant]
  4. ELIQUIS [Concomitant]
     Active Substance: APIXABAN
  5. FUROSEMIDE [Concomitant]
     Active Substance: FUROSEMIDE
  6. LEVOTHYROXINE [Concomitant]
     Active Substance: LEVOTHYROXINE
  7. LOSARTAN [Concomitant]
     Active Substance: LOSARTAN
  8. METOPROLOL TARTRATE [Concomitant]
     Active Substance: METOPROLOL TARTRATE

REACTIONS (5)
  - Pneumonia [None]
  - Pulmonary toxicity [None]
  - Cardiomyopathy [None]
  - Acute respiratory failure [None]
  - Blood creatinine increased [None]

NARRATIVE: CASE EVENT DATE: 20230927
